FAERS Safety Report 18509229 (Version 1)
Quarter: 2020Q4

REPORT INFORMATION
  Report Type: Report from Study
  Country: None (occurrence: DE)
  Receive Date: 20201117
  Receipt Date: 20201117
  Transmission Date: 20210114
  Serious: Yes (Hospitalization, Other)
  Sender: FDA-Public Use
  Company Number: DE-ABBVIE-20K-062-3645562-00

PATIENT
  Age: 59 Year
  Sex: Male
  Weight: 102 kg

DRUGS (7)
  1. SKYRIZI [Suspect]
     Active Substance: RISANKIZUMAB-RZAA
     Indication: PSORIASIS
     Route: 058
     Dates: start: 20190708, end: 202004
  2. TORASEMID [Concomitant]
     Active Substance: TORSEMIDE
     Indication: PRODUCT USED FOR UNKNOWN INDICATION
  3. SALBUTAMOL [Concomitant]
     Active Substance: ALBUTEROL
     Indication: PRODUCT USED FOR UNKNOWN INDICATION
  4. SPIRONOLACTON [Concomitant]
     Active Substance: SPIRONOLACTONE
     Indication: PRODUCT USED FOR UNKNOWN INDICATION
  5. RAMIPRIL. [Concomitant]
     Active Substance: RAMIPRIL
     Indication: PRODUCT USED FOR UNKNOWN INDICATION
  6. SKYRIZI [Suspect]
     Active Substance: RISANKIZUMAB-RZAA
     Route: 058
     Dates: start: 20200710
  7. SPIOLTO RESPIMAT [Concomitant]
     Active Substance: OLODATEROL HYDROCHLORIDE\TIOTROPIUM BROMIDE MONOHYDRATE
     Indication: PRODUCT USED FOR UNKNOWN INDICATION

REACTIONS (52)
  - Left ventricular dysfunction [Unknown]
  - Arteriosclerosis coronary artery [Unknown]
  - Cardiomegaly [Unknown]
  - Emphysema [Unknown]
  - Blood albumin decreased [Unknown]
  - Hypoxia [Unknown]
  - Blood glucose increased [Unknown]
  - Cystatin C increased [Unknown]
  - Cardiac failure [Unknown]
  - Haemoglobin increased [Recovered/Resolved]
  - Mean cell volume increased [Recovered/Resolved]
  - Red cell distribution width increased [Recovered/Resolved]
  - Eosinophil count decreased [Unknown]
  - Blood pH decreased [Unknown]
  - PCO2 [Unknown]
  - Blood potassium increased [Unknown]
  - Renal failure [Unknown]
  - Coronary artery disease [Unknown]
  - General physical health deterioration [Unknown]
  - Umbilical hernia [Unknown]
  - Respiratory acidosis [Unknown]
  - Cystic lung disease [Unknown]
  - PO2 increased [Unknown]
  - Blood sodium decreased [Recovered/Resolved]
  - Red blood cell count increased [Recovered/Resolved]
  - Polycythaemia [Unknown]
  - White blood cell count increased [Unknown]
  - Neutrophil count increased [Unknown]
  - Embolic cerebellar infarction [Unknown]
  - Obesity [Unknown]
  - Carboxyhaemoglobin decreased [Unknown]
  - Blood potassium increased [Recovered/Resolved]
  - Blood creatinine increased [Recovered/Resolved]
  - C-reactive protein increased [Unknown]
  - Haematocrit increased [Unknown]
  - Hyponatraemia [Unknown]
  - Pleural effusion [Unknown]
  - Chronic obstructive pulmonary disease [Unknown]
  - Procalcitonin increased [Unknown]
  - PCO2 [Recovered/Resolved]
  - Glomerular filtration rate increased [Unknown]
  - Atrial fibrillation [Unknown]
  - Respiratory failure [Unknown]
  - C-reactive protein increased [Recovered/Resolved]
  - Haematocrit increased [Recovered/Resolved]
  - Lymphocyte count decreased [Unknown]
  - Cerebrovascular accident [Recovered/Resolved]
  - Pickwickian syndrome [Recovered/Resolved]
  - Tricuspid valve incompetence [Unknown]
  - Hyperkalaemia [Unknown]
  - Lipoatrophy [Unknown]
  - Haemoglobin increased [Unknown]

NARRATIVE: CASE EVENT DATE: 2020
